FAERS Safety Report 4365770-X (Version None)
Quarter: 2004Q2

REPORT INFORMATION
  Report Type: 
  Country: None (occurrence: None)
  Receive Date: 20040520
  Receipt Date: 20040513
  Transmission Date: 20050107
  Serious: No
  Sender: FDA-Public Use
  Company Number: 2004SE02709

PATIENT
  Age: 37 Year
  Sex: Male

DRUGS (4)
  1. BUPIVACAINE [Suspect]
     Indication: ANALGESIC EFFECT
     Dosage: 20 MG ONCE IT
     Route: 038
  2. DIAZEPAM [Concomitant]
  3. FENTANYL [Concomitant]
  4. POTASSIUM [Concomitant]

REACTIONS (7)
  - ATRIAL FIBRILLATION [None]
  - ATRIOVENTRICULAR BLOCK SECOND DEGREE [None]
  - DISEASE PROGRESSION [None]
  - DYSAESTHESIA [None]
  - DYSPNOEA [None]
  - HYPOKALAEMIA [None]
  - MUSCULAR WEAKNESS [None]
